FAERS Safety Report 8532244-1 (Version None)
Quarter: 2012Q3

REPORT INFORMATION
  Report Type: 
  Country: None (occurrence: None)
  Receive Date: 20120723
  Receipt Date: 20120718
  Transmission Date: 20120928
  Serious: Yes (Hospitalization, Other)
  Sender: FDA-Public Use
  Company Number: US-AMGEN-USASP2012044772

PATIENT
  Sex: Female

DRUGS (10)
  1. XELODA [Concomitant]
     Indication: BREAST CANCER
     Dates: start: 20120101, end: 20120101
  2. GEMZAR [Concomitant]
  3. CARBOPLATIN [Concomitant]
  4. NEUPOGEN [Suspect]
     Indication: BREAST CANCER
     Dosage: UNK
     Dates: start: 20120101
  5. ARANESP [Suspect]
     Indication: BREAST CANCER
  6. CYTOXAN [Concomitant]
     Indication: BREAST CANCER STAGE II
  7. NEULASTA [Suspect]
     Indication: BREAST CANCER
     Dosage: UNK
     Dates: start: 20080101
  8. NEULASTA [Suspect]
     Indication: CHEMOTHERAPY
  9. ARANESP [Suspect]
     Indication: RED BLOOD CELL ABNORMALITY
  10. ADRIAMYCIN PFS [Concomitant]
     Indication: BREAST CANCER STAGE II
     Dosage: UNK
     Dates: start: 20080101

REACTIONS (6)
  - BRAIN OEDEMA [None]
  - RED BLOOD CELL ABNORMALITY [None]
  - BONE PAIN [None]
  - MIGRAINE [None]
  - MYALGIA [None]
  - METASTASES TO LUNG [None]
